FAERS Safety Report 8544873-X (Version None)
Quarter: 2012Q3

REPORT INFORMATION
  Report Type: 
  Country: None (occurrence: None)
  Receive Date: 20120727
  Receipt Date: 20120719
  Transmission Date: 20120928
  Serious: Yes (Hospitalization)
  Sender: FDA-Public Use
  Company Number: FI-ELI_LILLY_AND_COMPANY-FI201206007663

PATIENT
  Sex: Female

DRUGS (10)
  1. SPIRIVA [Concomitant]
     Indication: ASTHMA
     Dosage: UNK
  2. VITAMIN B-12 [Concomitant]
     Indication: MEDICAL DIET
     Dosage: UNK
  3. CALCIUM+VIT D                      /00944201/ [Concomitant]
     Indication: MEDICAL DIET
     Dosage: UNK
  4. FLUTICASONE PROPIONATE/SALMETEROL [Concomitant]
     Indication: ASTHMA
     Dosage: UNK
  5. IRON [Concomitant]
     Indication: MEDICAL DIET
     Dosage: UNK
  6. ACETAMINOPHEN [Concomitant]
     Indication: ANALGESIC THERAPY
     Dosage: UNK
  7. FORTEO [Suspect]
     Indication: OSTEOPOROSIS
     Dosage: 20 UG, QD
     Route: 058
     Dates: start: 20110621
  8. LEVOTHYROXINE SODIUM [Concomitant]
     Indication: HYPOTHYROIDISM
     Dosage: UNK
  9. TRAMADOL HYDROCHLORIDE [Concomitant]
     Indication: ANALGESIC THERAPY
     Dosage: UNK
  10. VITAMIN D [Concomitant]
     Indication: MEDICAL DIET
     Dosage: UNK

REACTIONS (3)
  - RADIUS FRACTURE [None]
  - FALL [None]
  - ULNA FRACTURE [None]
